FAERS Safety Report 14656501 (Version 3)
Quarter: 2018Q2

REPORT INFORMATION
  Report Type: Spontaneous
  Country: GR (occurrence: GR)
  Receive Date: 20180319
  Receipt Date: 20180525
  Transmission Date: 20180711
  Serious: Yes (Death, Other)
  Sender: FDA-Public Use
  Company Number: GR-PFIZER INC-2018113148

PATIENT
  Age: 14 Year
  Sex: Male

DRUGS (1)
  1. VFEND [Suspect]
     Active Substance: VORICONAZOLE
     Indication: BRONCHOPULMONARY ASPERGILLOSIS
     Dosage: UNK

REACTIONS (5)
  - Death [Fatal]
  - Neoplasm progression [Unknown]
  - Nephropathy toxic [Unknown]
  - Mucormycosis [Recovering/Resolving]
  - Blood potassium abnormal [Unknown]
